FAERS Safety Report 12286882 (Version 1)
Quarter: 2016Q2

REPORT INFORMATION
  Report Type: Spontaneous
  Country: US (occurrence: US)
  Receive Date: 20160420
  Receipt Date: 20160420
  Transmission Date: 20160815
  Serious: No
  Sender: FDA-Public Use
  Company Number: US-SHIRE-US201604724

PATIENT
  Age: 28 Year
  Sex: Female
  Weight: 45.35 kg

DRUGS (1)
  1. VYVANSE [Suspect]
     Active Substance: LISDEXAMFETAMINE DIMESYLATE
     Indication: BINGE EATING
     Dosage: 30 MG, 1X/DAY:QD
     Route: 048
     Dates: start: 201604

REACTIONS (3)
  - Fatigue [Unknown]
  - Feeling jittery [Unknown]
  - Palpitations [Unknown]

NARRATIVE: CASE EVENT DATE: 201604
